FAERS Safety Report 18601891 (Version 2)
Quarter: 2021Q1

REPORT INFORMATION
  Report Type: Spontaneous
  Country: IT (occurrence: IT)
  Receive Date: 20201210
  Receipt Date: 20210104
  Transmission Date: 20210419
  Serious: Yes (Hospitalization, Other)
  Sender: FDA-Public Use
  Company Number: IT-MYLANLABS-2020M1101785

PATIENT
  Age: 44 Year
  Sex: Female

DRUGS (24)
  1. PROMAZINE [Suspect]
     Active Substance: PROMAZINE
     Indication: BIPOLAR DISORDER
     Dosage: 25 MILLIGRAM DURING THE...
     Route: 030
     Dates: start: 201809
  2. HALOPERIDOL. [Suspect]
     Active Substance: HALOPERIDOL
     Indication: AGGRESSION
  3. HALOPERIDOL. [Suspect]
     Active Substance: HALOPERIDOL
     Indication: PSYCHOMOTOR HYPERACTIVITY
  4. CHLORPROMAZINE. [Suspect]
     Active Substance: CHLORPROMAZINE
     Indication: PSYCHOMOTOR HYPERACTIVITY
  5. ARIPIPRAZOLE. [Suspect]
     Active Substance: ARIPIPRAZOLE
     Indication: BIPOLAR DISORDER
     Dosage: 9.75 MILLIGRAM DURING THE FIRST...
     Route: 030
     Dates: start: 201809
  6. VALPROIC ACID. [Suspect]
     Active Substance: VALPROIC ACID
     Indication: BIPOLAR DISORDER
  7. CHLORPROMAZINE. [Suspect]
     Active Substance: CHLORPROMAZINE
     Indication: AGGRESSION
  8. LORAZEPAM. [Concomitant]
     Active Substance: LORAZEPAM
     Indication: PSYCHOTIC SYMPTOM
     Dosage: 4 MILLIGRAM DURING THE FIRST TWO DAYS IN THE EMERGENCY UNIT; AS NEEDED
     Route: 030
     Dates: start: 201809
  9. SODIUM VALPROATE [Suspect]
     Active Substance: VALPROATE SODIUM
     Indication: PSYCHOTIC SYMPTOM
     Dosage: 400 MILLIGRAM, PRN.....
     Route: 065
     Dates: start: 201809
  10. VALPROIC ACID. [Suspect]
     Active Substance: VALPROIC ACID
     Indication: PSYCHOTIC SYMPTOM
     Dosage: 400 MILLIGRAM, QD UPON ADMISSION
     Route: 042
     Dates: start: 2018
  11. DELORAZEPAM [Concomitant]
     Active Substance: DELORAZEPAM
     Indication: BIPOLAR DISORDER
     Dosage: 2 MILLIGRAM 2 MILLIGRAM DURING THE FIRST TWO DAYS IN THE EMERGENCY UNIT; AS NEEDED
     Route: 030
  12. CLOZAPINE. [Suspect]
     Active Substance: CLOZAPINE
     Indication: BIPOLAR DISORDER
     Dosage: 175 MILLIGRAM, QD FROM DAY 12
     Route: 065
     Dates: start: 2018
  13. ARIPIPRAZOLE. [Suspect]
     Active Substance: ARIPIPRAZOLE
     Indication: PSYCHOTIC SYMPTOM
     Dosage: 9.75 MILLIGRAM, BID...
     Route: 030
     Dates: start: 2018
  14. HALOPERIDOL. [Suspect]
     Active Substance: HALOPERIDOL
     Indication: BIPOLAR DISORDER
  15. CHLORPROMAZINE. [Suspect]
     Active Substance: CHLORPROMAZINE
     Indication: PSYCHOTIC SYMPTOM
     Dosage: 100 MILLIGRAM ON..
     Route: 048
     Dates: start: 2018
  16. LORAZEPAM. [Concomitant]
     Active Substance: LORAZEPAM
     Dosage: 4 MILLIGRAM, TID UPON ADMISSION; THREE TIME DAILY
     Route: 030
     Dates: start: 2018
  17. PROMAZINE [Suspect]
     Active Substance: PROMAZINE
     Indication: PSYCHOTIC SYMPTOM
  18. ARIPIPRAZOLE. [Suspect]
     Active Substance: ARIPIPRAZOLE
     Indication: BIPOLAR DISORDER
     Dosage: 30 MILLIGRAM, QD....
     Route: 048
     Dates: start: 2018
  19. CLOZAPINE. [Suspect]
     Active Substance: CLOZAPINE
     Indication: PSYCHOTIC SYMPTOM
     Dosage: 150 MILLIGRAM, QD
     Route: 065
     Dates: start: 2018
  20. ARIPIPRAZOLE. [Suspect]
     Active Substance: ARIPIPRAZOLE
     Indication: PSYCHOTIC SYMPTOM
     Dosage: 7.5 MG IM TWICE DAILY AND...
     Route: 048
  21. SODIUM VALPROATE [Suspect]
     Active Substance: VALPROATE SODIUM
     Indication: BIPOLAR DISORDER
  22. HALOPERIDOL. [Suspect]
     Active Substance: HALOPERIDOL
     Indication: PSYCHOTIC SYMPTOM
     Dosage: 5 MILLIGRAM,DURING THE...
     Route: 065
     Dates: start: 201809
  23. CHLORPROMAZINE. [Suspect]
     Active Substance: CHLORPROMAZINE
     Indication: BIPOLAR DISORDER
  24. DELORAZEPAM [Concomitant]
     Active Substance: DELORAZEPAM
     Indication: PSYCHOTIC SYMPTOM
     Dosage: 2 MILLIGRAM DURING THE FIRST TWO DAYS IN THE EMERGENCY UNIT; AS NEEDED
     Route: 030
     Dates: start: 201809

REACTIONS (8)
  - Neuroleptic malignant syndrome [Recovered/Resolved]
  - Pseudomonas infection [Recovered/Resolved]
  - Candida infection [Recovered/Resolved]
  - Klebsiella infection [Recovered/Resolved]
  - Off label use [Unknown]
  - Staphylococcal infection [Recovered/Resolved]
  - Hypokalaemia [Recovered/Resolved]
  - Hypomagnesaemia [Recovered/Resolved]

NARRATIVE: CASE EVENT DATE: 2018
